FAERS Safety Report 6504733-2 (Version None)
Quarter: 2009Q4

REPORT INFORMATION
  Report Type: 
  Country: None (occurrence: None)
  Receive Date: 20091218
  Receipt Date: 20091207
  Transmission Date: 20100525
  Serious: Yes (Other)
  Sender: FDA-Public Use
  Company Number: US-ELI_LILLY_AND_COMPANY-US200912001926

PATIENT
  Age: 54 Year
  Sex: Male

DRUGS (3)
  1. CIALIS [Suspect]
     Dosage: 5 MG, DAILY (1/D)
     Route: 065
  2. CIALIS [Suspect]
     Dosage: 10 MG, UNKNOWN
     Route: 065
  3. CIALIS [Suspect]
     Dosage: 20 MG, UNKNOWN
     Route: 065

REACTIONS (2)
  - DRUG EFFECT DECREASED [None]
  - RENAL FAILURE [None]
